FAERS Safety Report 8009658-1 (Version None)
Quarter: 2011Q4

REPORT INFORMATION
  Report Type: 
  Country: None (occurrence: None)
  Receive Date: 20111228
  Receipt Date: 20111221
  Transmission Date: 20120403
  Serious: No
  Sender: FDA-Public Use
  Company Number: US-BIOGENIDEC-2010BI043271

PATIENT
  Sex: Male

DRUGS (2)
  1. TYSABRI [Suspect]
     Route: 042
     Dates: start: 20111123
  2. TYSABRI [Suspect]
     Indication: MULTIPLE SCLEROSIS
     Route: 042
     Dates: start: 20100122

REACTIONS (6)
  - TEMPERATURE INTOLERANCE [None]
  - VISION BLURRED [None]
  - GAIT DISTURBANCE [None]
  - VISUAL IMPAIRMENT [None]
  - AMNESIA [None]
  - ASTHENIA [None]
